FAERS Safety Report 5772501-5 (Version None)
Quarter: 2008Q2

REPORT INFORMATION
  Report Type: 
  Country: None (occurrence: None)
  Receive Date: 20080613
  Receipt Date: 20080605
  Transmission Date: 20081010
  Serious: Yes (Hospitalization, Other)
  Sender: FDA-Public Use
  Company Number: US-ABBOTT-08P-163-0455653-00

PATIENT
  Sex: Female
  Weight: 68.1 kg

DRUGS (11)
  1. HUMIRA [Suspect]
     Indication: RHEUMATOID ARTHRITIS
     Route: 058
     Dates: start: 20000101, end: 20080530
  2. ESTROGENS CONJUGATED [Concomitant]
     Indication: HYSTERECTOMY
     Route: 048
     Dates: start: 20010701
  3. SALIGEN [Concomitant]
     Indication: SALIVA ALTERED
     Route: 048
  4. SALIGEN [Concomitant]
     Indication: SJOGREN'S SYNDROME
  5. VICODIN [Concomitant]
     Indication: PAIN
     Dosage: 1.5/325, ONE EVERY 4-6 HOURS
     Route: 048
     Dates: start: 20031101
  6. TIZANIDINE HYDROCHLORIDE [Concomitant]
     Indication: PAIN
     Route: 048
  7. BACLOS [Concomitant]
     Indication: DRUG USE FOR UNKNOWN INDICATION
     Route: 048
  8. ALPRAZOLAM [Concomitant]
     Indication: INSOMNIA
     Dosage: AT BEDTIME
     Route: 048
  9. ZOLPIDEM TARTRATE [Concomitant]
     Indication: INSOMNIA
     Route: 048
  10. AMLODIPINE BESYLATE [Concomitant]
     Indication: RAYNAUD'S PHENOMENON
     Route: 048
  11. NITROFURANTOIN [Concomitant]
     Indication: URINARY TRACT INFECTION
     Dosage: 100 MG TWO TIMES DAILY, 20 PILLS
     Route: 048
     Dates: start: 20080602

REACTIONS (17)
  - BLOOD COUNT ABNORMAL [None]
  - DEHYDRATION [None]
  - DIZZINESS [None]
  - DYSPNOEA [None]
  - INFLUENZA [None]
  - INJECTION SITE ERYTHEMA [None]
  - INJECTION SITE IRRITATION [None]
  - INJECTION SITE PAIN [None]
  - LYMPHADENOPATHY [None]
  - MEMORY IMPAIRMENT [None]
  - NECK MASS [None]
  - OXYGEN SATURATION DECREASED [None]
  - PHARYNGOLARYNGEAL PAIN [None]
  - PLEURISY [None]
  - TUBERCULIN TEST POSITIVE [None]
  - URINARY TRACT INFECTION [None]
  - VAGINAL HAEMORRHAGE [None]
